FAERS Safety Report 6807998-2 (Version None)
Quarter: 2010Q2

REPORT INFORMATION
  Report Type: 
  Country: None (occurrence: None)
  Receive Date: 20100629
  Receipt Date: 20090320
  Transmission Date: 20101027
  Serious: Yes (Other)
  Sender: FDA-Public Use
  Company Number: US-PFIZER INC-2009188384

PATIENT
  Sex: Female

DRUGS (14)
  1. ARTHROTEC [Suspect]
     Dosage: 1 DF, 2X/DAY
  2. IBANDRONIC ACID [Suspect]
     Indication: OSTEOPOROSIS
     Dosage: 150 MG, MONTHLY
     Route: 048
     Dates: start: 20060401
  3. PREMARIN [Concomitant]
  4. DIOVAN [Concomitant]
  5. FUROSEMIDE [Concomitant]
  6. SERTRALINE [Concomitant]
  7. ACETAMINOPHEN WITH PROPOXYPHENE HCL TAB [Concomitant]
  8. FISH OIL [Concomitant]
  9. ACETYLCYSTEINE [Concomitant]
  10. CARNITINE [Concomitant]
  11. CALCIUM [Concomitant]
  12. VITAMIN D [Concomitant]
  13. MULTI-VITAMINS [Concomitant]
  14. LIPITOR [Concomitant]

REACTIONS (1)
  - RENAL IMPAIRMENT [None]
